FAERS Safety Report 5883199-X (Version None)
Quarter: 2008Q3

REPORT INFORMATION
  Report Type: 
  Country: None (occurrence: None)
  Receive Date: 20080915
  Receipt Date: 20080912
  Transmission Date: 20090109
  Serious: Yes (Hospitalization)
  Sender: FDA-Public Use
  Company Number: PHHO2004CA03714

PATIENT
  Sex: Male
  Weight: 98.9 kg

DRUGS (9)
  1. PTK 787A T35913+ [Suspect]
     Indication: COLORECTAL CANCER METASTATIC
     Dosage: UNK
     Route: 048
     Dates: start: 20040303, end: 20040304
  2. PTK 787A T35913+ [Suspect]
     Dosage: NO TREATMENT
     Dates: start: 20040305, end: 20040315
  3. PTK 787A T35913+ [Suspect]
     Dosage: UNK
     Dates: start: 20040316
  4. DEXAMETHASONE [Suspect]
  5. DOLASETRON [Suspect]
  6. OXALIPLATIN [Concomitant]
     Indication: COLORECTAL CANCER METASTATIC
     Dates: start: 20040303
  7. FLUOROURACIL [Concomitant]
     Indication: COLORECTAL CANCER METASTATIC
     Dates: start: 20040303
  8. LEUCOVORIN CALCIUM [Concomitant]
     Indication: COLORECTAL CANCER METASTATIC
     Dates: start: 20040303
  9. HYDROMORPHONE HCL [Concomitant]

REACTIONS (10)
  - ABDOMINAL PAIN [None]
  - BACK PAIN [None]
  - CONSTIPATION [None]
  - GASTROOESOPHAGEAL REFLUX DISEASE [None]
  - HYPOKALAEMIA [None]
  - HYPOMAGNESAEMIA [None]
  - MALIGNANT NEOPLASM PROGRESSION [None]
  - OESOPHAGEAL DISORDER [None]
  - SMALL INTESTINAL OBSTRUCTION [None]
  - VOMITING [None]
